FAERS Safety Report 12501373 (Version 1)
Quarter: 2016Q2

REPORT INFORMATION
  Report Type: Spontaneous
  Country: DE (occurrence: DE)
  Receive Date: 20160627
  Receipt Date: 20160627
  Transmission Date: 20160815
  Serious: Yes (Hospitalization)
  Sender: FDA-Public Use
  Company Number: DE-MYLANLABS-2016M1025357

PATIENT

DRUGS (5)
  1. BISOPROLOL                         /00802602/ [Concomitant]
     Active Substance: BISOPROLOL
     Dosage: 1 DF, QD (DAILY DOSE: 1 DF DOSAGE FORM EVERY DAY)
  2. RAMIPRIL. [Concomitant]
     Active Substance: RAMIPRIL
     Dosage: 1 DF, QD (DAILY DOSE: 1 DF DOSAGE FORM EVERY DAY)
  3. AMLODIPINE                         /00972402/ [Concomitant]
     Active Substance: AMLODIPINE BESYLATE
     Dosage: 0.5 DF, QD (DAILY DOSE: 0.5 DF DOSAGE FORM EVERY DAY)
  4. SIMVASTATIN. [Suspect]
     Active Substance: SIMVASTATIN
     Indication: CORONARY ARTERY DISEASE
     Dosage: 20 MG, QD (DAILY DOSE: 20 MG MILLIGRAM(S) EVERY DAY)
     Route: 048
     Dates: start: 20101215, end: 20160610
  5. ASPIRIN. [Concomitant]
     Active Substance: ASPIRIN
     Dosage: 1 DF, QD (DAILY DOSE: 1 DF DOSAGE FORM EVERY DAY)

REACTIONS (1)
  - Tendon rupture [Unknown]

NARRATIVE: CASE EVENT DATE: 20160425
